FAERS Safety Report 5333738-2 (Version None)
Quarter: 2007Q2

REPORT INFORMATION
  Report Type: 
  Country: None (occurrence: None)
  Receive Date: 20070524
  Receipt Date: 20070516
  Transmission Date: 20071010
  Serious: Yes (Life-Threatening, Hospitalization, Disabling)
  Sender: FDA-Public Use
  Company Number: US-KINGPHARMUSA00001-K200700601

PATIENT

DRUGS (5)
  1. ALTACE [Suspect]
     Indication: HYPERTENSION
     Dosage: UNK, QD
     Route: 048
     Dates: start: 20070417, end: 20070401
  2. FELODIPINE [Suspect]
     Indication: HYPERTENSION
     Dosage: UNK, QD
     Route: 048
     Dates: start: 20070417, end: 20070401
  3. ACETYLSALICYLIC ACID SRT [Concomitant]
  4. CARVEDILOL [Concomitant]
  5. STATIN NOS /00084401/ [Concomitant]

REACTIONS (3)
  - APHASIA [None]
  - ISCHAEMIC STROKE [None]
  - PARALYSIS [None]
